FAERS Safety Report 22745719 (Version 2)
Quarter: 2025Q3

REPORT INFORMATION
  Report Type: Spontaneous
  Country: CA (occurrence: CA)
  Receive Date: 20230725
  Receipt Date: 20250923
  Transmission Date: 20251021
  Serious: Yes (Other)
  Sender: ALEXION PHARMACEUTICALS
  Company Number: 2023A167411

PATIENT
  Age: 41 Year
  Sex: Female
  Weight: 133 kg

DRUGS (4)
  1. BUDESONIDE [Suspect]
     Active Substance: BUDESONIDE
     Indication: Crohn^s disease
     Route: 065
  2. HUMIRA [Suspect]
     Active Substance: ADALIMUMAB
     Indication: Crohn^s disease
     Route: 065
  3. MESALAMINE [Suspect]
     Active Substance: MESALAMINE
     Indication: Crohn^s disease
     Route: 065
  4. STELARA [Suspect]
     Active Substance: USTEKINUMAB
     Indication: Crohn^s disease
     Route: 065

REACTIONS (9)
  - Abdominal pain [Unknown]
  - Abdominal pain lower [Unknown]
  - Condition aggravated [Unknown]
  - Crohn^s disease [Unknown]
  - Diarrhoea [Unknown]
  - Drug ineffective [Unknown]
  - Impaired quality of life [Unknown]
  - Off label use [Unknown]
  - Treatment failure [Unknown]
